FAERS Safety Report 11948511 (Version 3)
Quarter: 2016Q1

REPORT INFORMATION
  Report Type: Spontaneous
  Country: TR (occurrence: TR)
  Receive Date: 20160125
  Receipt Date: 20160211
  Transmission Date: 20160526
  Serious: Yes (Hospitalization)
  Sender: FDA-Public Use
  Company Number: PHHY2016TR008491

PATIENT
  Age: 68 Year
  Sex: Female

DRUGS (35)
  1. BELOC-ZOK COMP [Concomitant]
     Active Substance: HYDROCHLOROTHIAZIDE\METOPROLOL SUCCINATE
     Dosage: 50 MG, QD
     Route: 065
     Dates: start: 20150904, end: 20151213
  2. MONOPRIL PLUS [Concomitant]
     Indication: HYPERTENSION
     Dosage: 10/12,5MG
     Route: 065
     Dates: start: 20150701, end: 20151102
  3. ACTIDEM [Concomitant]
     Indication: PRODUCT USED FOR UNKNOWN INDICATION
     Dosage: 10/30/1.25MG
     Route: 048
     Dates: start: 20150904, end: 20150914
  4. ROMASULID [Concomitant]
     Dosage: UNK, BID
     Route: 065
     Dates: start: 20151130, end: 20151210
  5. CALCIMAX D3 [Concomitant]
     Indication: OSTEOPOROTIC FRACTURE
     Dosage: 2500MG/880IU
     Route: 065
     Dates: start: 20160120
  6. MAGNORM [Concomitant]
     Indication: PRODUCT USED FOR UNKNOWN INDICATION
     Dosage: 365 MG, QD
     Route: 065
     Dates: start: 20151130, end: 20151230
  7. ROMASULID [Concomitant]
     Indication: PRODUCT USED FOR UNKNOWN INDICATION
     Dosage: UNK UNK, QID
     Route: 065
     Dates: start: 20150810, end: 20150820
  8. TRAVOZOLE [Concomitant]
     Dosage: UNK, BID
     Route: 061
     Dates: start: 20160113, end: 20160123
  9. DEXPLUS [Concomitant]
     Indication: PRODUCT USED FOR UNKNOWN INDICATION
     Dosage: 25/8MG
     Route: 065
     Dates: start: 20151130, end: 20151210
  10. ARVELES [Concomitant]
     Active Substance: DEXKETOPROFEN
     Indication: PRODUCT USED FOR UNKNOWN INDICATION
     Dosage: 25 MG, BID
     Route: 065
     Dates: start: 20150904, end: 20150914
  11. TRAVOZOLE [Concomitant]
     Indication: PRODUCT USED FOR UNKNOWN INDICATION
     Dosage: UNK UNK, BID
     Route: 061
     Dates: start: 20151005, end: 20151020
  12. MAGVITAL [Concomitant]
     Indication: PRODUCT USED FOR UNKNOWN INDICATION
     Dosage: 365 MG, QD
     Route: 065
     Dates: start: 20150810, end: 20150909
  13. OSMOLAK [Concomitant]
     Indication: PRODUCT USED FOR UNKNOWN INDICATION
     Dosage: FOUR TIMES TWO SPOON DAILY
     Route: 048
     Dates: start: 20150904, end: 20150906
  14. VITAKOBAL [Concomitant]
     Indication: PRODUCT USED FOR UNKNOWN INDICATION
     Dosage: 1000 UG, WEEKLY
     Route: 030
     Dates: start: 20160120
  15. NYZANT [Concomitant]
     Indication: PRODUCT USED FOR UNKNOWN INDICATION
     Dosage: 300 MG, QD
     Route: 065
     Dates: start: 20160120
  16. FERRUM HAUSMANN [Concomitant]
     Active Substance: FERROUS FUMARATE
     Indication: PRODUCT USED FOR UNKNOWN INDICATION
     Dosage: 100/0.35MG
     Route: 065
     Dates: start: 20160107, end: 20160206
  17. RABIZA [Concomitant]
     Indication: PRODUCT USED FOR UNKNOWN INDICATION
     Dosage: 20 MG, QD
     Route: 065
     Dates: start: 20160107, end: 20160204
  18. DEVIT 3 [Concomitant]
     Indication: PRODUCT USED FOR UNKNOWN INDICATION
     Dosage: 300000 IU, WEEKLY
     Route: 030
     Dates: start: 20160120, end: 20160203
  19. BRUFEN//IBUPROFEN [Concomitant]
     Active Substance: IBUPROFEN
     Indication: PRODUCT USED FOR UNKNOWN INDICATION
     Dosage: 400 MG, TID
     Route: 065
     Dates: start: 20150904, end: 20150910
  20. PARAFON [Concomitant]
     Indication: PRODUCT USED FOR UNKNOWN INDICATION
     Dosage: 300/250MG
     Route: 065
     Dates: start: 20150810, end: 20150816
  21. BELOC-ZOK COMP [Concomitant]
     Active Substance: HYDROCHLOROTHIAZIDE\METOPROLOL SUCCINATE
     Indication: HYPERTENSION
     Dosage: 50 MG, QD
     Route: 065
     Dates: start: 20150527, end: 20150904
  22. ASPIRIN. [Concomitant]
     Active Substance: ASPIRIN
     Indication: HYPERTENSION
     Dosage: 100 MG, QD
     Route: 065
     Dates: start: 20151005, end: 20151104
  23. APRANAX PLUS [Concomitant]
     Indication: PRODUCT USED FOR UNKNOWN INDICATION
     Dosage: 550/30MG
     Route: 065
     Dates: start: 20160107, end: 20160117
  24. DOLOREX [Concomitant]
     Indication: PRODUCT USED FOR UNKNOWN INDICATION
     Dosage: 50 MG, BID
     Route: 065
     Dates: start: 20151215, end: 20160114
  25. APIKOBAL [Concomitant]
     Active Substance: CYANOCOBALAMIN\PYRIDOXINE HYDROCHLORIDE\THIAMINE
     Indication: PRODUCT USED FOR UNKNOWN INDICATION
     Dosage: 250/250/1MG
     Route: 065
     Dates: start: 20151130, end: 20151230
  26. DIPROSPAN [Concomitant]
     Active Substance: BETAMETHASONE DIPROPIONATE\BETAMETHASONE SODIUM PHOSPHATE
     Indication: PRODUCT USED FOR UNKNOWN INDICATION
     Dosage: 2/5MG
     Route: 065
     Dates: start: 20151215, end: 20151216
  27. LANSOR [Concomitant]
     Active Substance: LANSOPRAZOLE
     Indication: PRODUCT USED FOR UNKNOWN INDICATION
     Dosage: 30 MG, QD
     Route: 065
     Dates: start: 20151005, end: 20151102
  28. ARVELES [Concomitant]
     Active Substance: DEXKETOPROFEN
     Dosage: 25 MG, BID
     Route: 065
     Dates: start: 20151005, end: 20151025
  29. CABRAL [Concomitant]
     Indication: PRODUCT USED FOR UNKNOWN INDICATION
     Dosage: 400 MG, BID
     Route: 065
     Dates: start: 20150903, end: 20150915
  30. DICLOMEC//DICLOFENAC SODIUM [Concomitant]
     Indication: PRODUCT USED FOR UNKNOWN INDICATION
     Dosage: 75 MG, QD
     Route: 065
     Dates: start: 20160120
  31. RANTUDIL [Concomitant]
     Active Substance: ACEMETACIN
     Indication: PRODUCT USED FOR UNKNOWN INDICATION
     Dosage: 60 MG, BID
     Route: 065
     Dates: start: 20151215, end: 20160114
  32. ACLASTA [Suspect]
     Active Substance: ZOLEDRONIC ACID
     Indication: OSTEOPOROTIC FRACTURE
     Dosage: 5MG/100ML, ANNUALLY
     Route: 042
     Dates: start: 20160120
  33. NAPROSYN [Concomitant]
     Active Substance: NAPROXEN
     Indication: PRODUCT USED FOR UNKNOWN INDICATION
     Dosage: 750 MG, QD
     Route: 065
     Dates: start: 20150810, end: 20150830
  34. MONODOKS [Concomitant]
     Indication: PRODUCT USED FOR UNKNOWN INDICATION
     Dosage: 100 MG, BID
     Route: 065
     Dates: start: 20160107, end: 20160114
  35. ACETYLCYSTEINE. [Concomitant]
     Active Substance: ACETYLCYSTEINE
     Indication: PRODUCT USED FOR UNKNOWN INDICATION
     Dosage: 900 MG, QD
     Route: 065
     Dates: start: 20150904, end: 20150924

REACTIONS (2)
  - Cerebrovascular accident [Recovering/Resolving]
  - Compression fracture [Recovering/Resolving]

NARRATIVE: CASE EVENT DATE: 20160120
